FAERS Safety Report 9743222 (Version 2)
Quarter: 2015Q3

REPORT INFORMATION
  Report Type: Spontaneous
  Country: US (occurrence: US)
  Receive Date: 20131210
  Receipt Date: 20150804
  Transmission Date: 20151125
  Serious: No
  Sender: FDA-Public Use
  Company Number: US-GILEAD-2009-0025078

PATIENT
  Age: 65 Year
  Sex: Female
  Weight: 61.23 kg

DRUGS (16)
  1. NORTRIPTYLINE HCL [Concomitant]
     Active Substance: NORTRIPTYLINE HYDROCHLORIDE
  2. OXYGEN. [Concomitant]
     Active Substance: OXYGEN
  3. ZANTAC [Concomitant]
     Active Substance: RANITIDINE HYDROCHLORIDE
  4. LETAIRIS [Suspect]
     Active Substance: AMBRISENTAN
     Indication: PULMONARY ARTERIAL HYPERTENSION
     Route: 048
     Dates: start: 20080325
  5. TRENTAL [Concomitant]
     Active Substance: PENTOXIFYLLINE
  6. VALTREX [Concomitant]
     Active Substance: VALACYCLOVIR HYDROCHLORIDE
  7. POTASSIUM CHLORIDE. [Concomitant]
     Active Substance: POTASSIUM CHLORIDE
  8. COZAAR [Concomitant]
     Active Substance: LOSARTAN POTASSIUM
  9. COREG [Concomitant]
     Active Substance: CARVEDILOL
  10. LISINOPRIL. [Concomitant]
     Active Substance: LISINOPRIL
  11. GABAPENTIN. [Concomitant]
     Active Substance: GABAPENTIN
  12. TRAMADOL. [Concomitant]
     Active Substance: TRAMADOL
  13. OMEPRAZOLE. [Concomitant]
     Active Substance: OMEPRAZOLE
  14. DIGOXIN. [Concomitant]
     Active Substance: DIGOXIN
  15. ARICEPT [Concomitant]
     Active Substance: DONEPEZIL HYDROCHLORIDE
  16. LEXAPRO [Concomitant]
     Active Substance: ESCITALOPRAM OXALATE

REACTIONS (1)
  - Chest pain [Unknown]
